FAERS Safety Report 19725330 (Version 1)
Quarter: 2021Q3

REPORT INFORMATION
  Report Type: Spontaneous
  Country: US (occurrence: US)
  Receive Date: 20210820
  Receipt Date: 20210820
  Transmission Date: 20211014
  Serious: No
  Sender: FDA-Public Use
  Company Number: US-CELLTRION INC.-2021US010154

PATIENT

DRUGS (4)
  1. TRUXIMA [Suspect]
     Active Substance: RITUXIMAB-ABBS
     Dosage: 580 MG
     Dates: start: 20210303
  2. TRUXIMA [Suspect]
     Active Substance: RITUXIMAB-ABBS
     Dosage: 580 MG
     Dates: start: 20210310
  3. TRUXIMA [Suspect]
     Active Substance: RITUXIMAB-ABBS
     Dosage: 580 MG
     Dates: start: 20210317
  4. TRUXIMA [Suspect]
     Active Substance: RITUXIMAB-ABBS
     Indication: AUTOIMMUNE HAEMOLYTIC ANAEMIA
     Dosage: 580 MG, WEEKLY X 4
     Dates: start: 20210224

REACTIONS (1)
  - Off label use [Unknown]

NARRATIVE: CASE EVENT DATE: 20210224
